FAERS Safety Report 7738505-8 (Version None)
Quarter: 2011Q3

REPORT INFORMATION
  Report Type: 
  Country: None (occurrence: None)
  Receive Date: 20110908
  Receipt Date: 20110829
  Transmission Date: 20111222
  Serious: Yes (Hospitalization)
  Sender: FDA-Public Use
  Company Number: JP-ASTRAZENECA-2011SE53228

PATIENT
  Age: 33 Year
  Sex: Female

DRUGS (3)
  1. HALCION [Suspect]
     Route: 048
  2. SEROQUEL [Suspect]
     Route: 048
  3. ROHYPNOL [Suspect]
     Route: 048

REACTIONS (1)
  - HEPATIC FUNCTION ABNORMAL [None]
